FAERS Safety Report 7479756-X (Version None)
Quarter: 2011Q2

REPORT INFORMATION
  Report Type: 
  Country: None (occurrence: None)
  Receive Date: 20110513
  Receipt Date: 20110513
  Transmission Date: 20111010
  Serious: Yes (Hospitalization)
  Sender: FDA-Public Use
  Company Number: IT-ABBOTT-11P-083-0718424-00

PATIENT
  Sex: Female

DRUGS (3)
  1. CLOTIAZEPAM [Suspect]
     Indication: SUICIDE ATTEMPT
     Dosage: 400 MG:TABLET
     Route: 048
     Dates: start: 20110104, end: 20110104
  2. BROMAZEPAM [Suspect]
     Indication: SUICIDE ATTEMPT
     Dosage: 60 MG TABLETS
     Route: 048
     Dates: start: 20110404, end: 20110404
  3. ESTAZOLAM [Suspect]
     Indication: SUICIDE ATTEMPT
     Dosage: 60 MG: TABLETS
     Route: 048
     Dates: start: 20110104, end: 20110104

REACTIONS (3)
  - TOXICITY TO VARIOUS AGENTS [None]
  - DIZZINESS [None]
  - SOMNOLENCE [None]
